FAERS Safety Report 6993940-0 (Version None)
Quarter: 2010Q3

REPORT INFORMATION
  Report Type: 
  Country: None (occurrence: None)
  Receive Date: 20100917
  Receipt Date: 20100104
  Transmission Date: 20110219
  Serious: Yes (Hospitalization)
  Sender: FDA-Public Use
  Company Number: US-ASTRAZENECA-2009UW21915

PATIENT
  Age: 364 Month
  Sex: Female
  Weight: 121.6 kg

DRUGS (11)
  1. SEROQUEL [Suspect]
     Indication: MOOD SWINGS
     Dosage: 25 MG UP TO 300 MG
     Route: 048
     Dates: start: 20000401
  2. SEROQUEL [Suspect]
     Indication: BIPOLAR DISORDER
     Dosage: 25 MG UP TO 300 MG
     Route: 048
     Dates: start: 20000401
  3. SEROQUEL [Suspect]
     Indication: ANXIETY
     Dosage: 25 MG UP TO 300 MG
     Route: 048
     Dates: start: 20000401
  4. SEROQUEL [Suspect]
     Indication: INSOMNIA
     Dosage: 25 MG UP TO 300 MG
     Route: 048
     Dates: start: 20000401
  5. XANAX [Concomitant]
  6. LAMICTAL [Concomitant]
  7. TOPAMAX [Concomitant]
  8. LITHIUM CARBONATE [Concomitant]
  9. LEXAPRO [Concomitant]
  10. PROZAC [Concomitant]
  11. ABILIFY [Concomitant]

REACTIONS (3)
  - DIABETES MELLITUS INADEQUATE CONTROL [None]
  - TYPE 2 DIABETES MELLITUS [None]
  - WEIGHT INCREASED [None]
